FAERS Safety Report 6941842-8 (Version None)
Quarter: 2010Q3

REPORT INFORMATION
  Report Type: 
  Country: None (occurrence: None)
  Receive Date: 20100826
  Receipt Date: 20100817
  Transmission Date: 20110219
  Serious: Yes (Other)
  Sender: FDA-Public Use
  Company Number: US-PFIZER INC-2010104055

PATIENT
  Sex: Female

DRUGS (2)
  1. LIPITOR [Suspect]
     Indication: BLOOD CHOLESTEROL INCREASED
     Dosage: 20 MG, UNK
     Dates: start: 20100201
  2. SYNTHROID [Suspect]
     Indication: THYROID DISORDER
     Dosage: UNK

REACTIONS (3)
  - FAECES DISCOLOURED [None]
  - HYPOAESTHESIA [None]
  - MUSCLE DISORDER [None]
